FAERS Safety Report 18817438 (Version 1)
Quarter: 2021Q1

REPORT INFORMATION
  Report Type: Spontaneous
  Country: PL (occurrence: PL)
  Receive Date: 20210201
  Receipt Date: 20210201
  Transmission Date: 20210419
  Serious: Yes (Other)
  Sender: FDA-Public Use
  Company Number: PL-TEVA-2021-PL-1873766

PATIENT
  Age: 41 Year
  Sex: Male
  Weight: 100 kg

DRUGS (2)
  1. METHOTREXATE (METHOTREXATE SODIUM) [Concomitant]
     Active Substance: METHOTREXATE SODIUM
     Indication: PSORIATIC ARTHROPATHY
     Dosage: 25 MG
     Route: 048
     Dates: start: 20150722
  2. EQUORAL [Suspect]
     Active Substance: CYCLOSPORINE
     Indication: PSORIATIC ARTHROPATHY
     Dosage: 100 MG
     Route: 048
     Dates: start: 20151125, end: 20161005

REACTIONS (1)
  - Transaminases increased [Recovered/Resolved]

NARRATIVE: CASE EVENT DATE: 20170609
